FAERS Safety Report 25937620 (Version 1)
Quarter: 2025Q4

REPORT INFORMATION
  Report Type: Spontaneous
  Country: GB (occurrence: GB)
  Receive Date: 20251018
  Receipt Date: 20251018
  Transmission Date: 20260119
  Serious: Yes (Other)
  Sender: AUROBINDO
  Company Number: GB-MHRA-TPP53910116C9923293YC1759749694472

PATIENT
  Age: 81 Year
  Sex: Female
  Weight: 90 kg

DRUGS (24)
  1. PREGABALIN [Suspect]
     Active Substance: PREGABALIN
     Indication: Ill-defined disorder
     Dosage: 100 MILLIGRAM, 3 TIMES A DAY
     Route: 065
     Dates: start: 20250512, end: 20251006
  2. CLARITHROMYCIN [Concomitant]
     Active Substance: CLARITHROMYCIN
     Indication: Ill-defined disorder
     Dosage: 1 DOSAGE FORM, TWO TIMES A DAY
     Route: 065
     Dates: start: 20250811, end: 20250818
  3. TRIMETHOPRIM [Concomitant]
     Active Substance: TRIMETHOPRIM
     Indication: Ill-defined disorder
     Dosage: 1 DOSAGE FORM, TWO TIMES A DAY (ONE TABLET TWICE A DAY)
     Route: 065
     Dates: start: 20250827, end: 20250903
  4. NITROFURANTOIN [Concomitant]
     Active Substance: NITROFURANTOIN
     Indication: Ill-defined disorder
     Dosage: 1 DOSAGE FORM, TWO TIMES A DAY
     Route: 065
     Dates: start: 20250829, end: 20250901
  5. DOXYCYCLINE [Concomitant]
     Active Substance: DOXYCYCLINE
     Indication: Ill-defined disorder
     Dosage: 1 DOSAGE FORM, TWO TIMES A DAY
     Route: 065
     Dates: start: 20251006
  6. KETOCONAZOLE [Concomitant]
     Active Substance: KETOCONAZOLE
     Indication: Ill-defined disorder
     Dosage: UNK UNK, TWO TIMES A DAY (APPLY TWICE DAILY)
     Route: 065
     Dates: start: 20241203
  7. Otomize [Concomitant]
     Indication: Ill-defined disorder
     Dosage: UNK (ONE SPRAY TO BE USED IN THE AFFECTED EAR(S) THR.)
     Route: 065
     Dates: start: 20230711
  8. POTASSIUM BICARBONATE\SODIUM ALGINATE [Concomitant]
     Active Substance: POTASSIUM BICARBONATE\SODIUM ALGINATE
     Indication: Ill-defined disorder
     Dosage: UNK (ONE OR TWO 5ML SPOONFULTS TO BE TAKEN AFTER MEA...)
     Route: 065
     Dates: start: 20240502
  9. ACETAMINOPHEN [Concomitant]
     Active Substance: ACETAMINOPHEN
     Indication: Ill-defined disorder
     Dosage: UNK UNK, FOUR TIMES/DAY (TAKE 2 TABLETS 4 TIMES DAILY FOR PAIN)
     Route: 065
     Dates: start: 20240502
  10. ATORVASTATIN [Concomitant]
     Active Substance: ATORVASTATIN
     Indication: Ill-defined disorder
     Dosage: 1 DOSAGE FORM, DAILY
     Route: 065
     Dates: start: 20241211
  11. INSULIN HUMAN [Concomitant]
     Active Substance: INSULIN HUMAN
     Indication: Ill-defined disorder
     Dosage: UNK (FOR SUBCUTANEOUS INJECTION, ACCORDING TO REQUIR)
     Route: 058
     Dates: start: 20241211
  12. BISOPROLOL [Concomitant]
     Active Substance: BISOPROLOL
     Indication: Ill-defined disorder
     Dosage: 1 DOSAGE FORM, ONCE A DAY
     Route: 065
     Dates: start: 20241211
  13. DERMOL [Concomitant]
     Active Substance: BENZALKONIUM CHLORIDE\CHLORHEXIDINE HYDROCHLORIDE\ISOPROPYL MYRISTATE\PARAFFIN
     Indication: Ill-defined disorder
     Dosage: UNK UNK, AS DIRECTED
     Route: 065
     Dates: start: 20241211
  14. LERCANIDIPINE HYDROCHLORIDE [Concomitant]
     Active Substance: LERCANIDIPINE HYDROCHLORIDE
     Indication: Ill-defined disorder
     Dosage: 1 DOSAGE FORM, DAILY
     Route: 065
     Dates: start: 20241211
  15. LEVOTHYROXINE [Concomitant]
     Active Substance: LEVOTHYROXINE
     Indication: Ill-defined disorder
     Dosage: 1 DOSAGE FORM, ONCE A DAY (ONE TO BE TAKEN EACH MORNING AT LEAST 30 MINUTE.)
     Route: 065
     Dates: start: 20241211
  16. OMEPRAZOLE [Concomitant]
     Active Substance: OMEPRAZOLE
     Indication: Ill-defined disorder
     Dosage: 1 DOSAGE FORM, ONCE A DAY
     Route: 065
     Dates: start: 20241211
  17. PERINDOPRIL ERBUMINE [Concomitant]
     Active Substance: PERINDOPRIL ERBUMINE
     Indication: Ill-defined disorder
     Dosage: 1 DOSAGE FORM, DAILY
     Route: 065
     Dates: start: 20241211
  18. FEXOFENADINE [Concomitant]
     Active Substance: FEXOFENADINE HYDROCHLORIDE
     Indication: Ill-defined disorder
     Dosage: 1 DOSAGE FORM, DAILY (TAKE ONE DAILY)
     Route: 065
     Dates: start: 20250417
  19. HYDROCORTISONE [Concomitant]
     Active Substance: HYDROCORTISONE
     Indication: Ill-defined disorder
     Dosage: UNK UNK, TWO TIMES A DAY (APPLY TWICE DAILY)
     Route: 065
     Dates: start: 20250427
  20. DIBUCAINE [Concomitant]
     Active Substance: DIBUCAINE
     Indication: Ill-defined disorder
     Dosage: UNK UNK, TWO TIMES A DAY
     Route: 065
     Dates: start: 20250512
  21. ESTRIOL [Concomitant]
     Active Substance: ESTRIOL
     Indication: Ill-defined disorder
     Dosage: UNK (APPLY AT NIGHT FOR 2 WEEKS, THEN USE TWICE A WE...)
     Route: 065
     Dates: start: 20250512
  22. DIBUCAINE HYDROCHLORIDE\PREDNISOLONE [Concomitant]
     Active Substance: DIBUCAINE HYDROCHLORIDE\PREDNISOLONE
     Indication: Ill-defined disorder
     Dosage: 1 DOSAGE FORM, DAILY
     Route: 065
     Dates: start: 20250512
  23. VENLAFAXINE [Concomitant]
     Active Substance: VENLAFAXINE HYDROCHLORIDE
     Indication: Ill-defined disorder
     Dosage: 1 DOSAGE FORM, ONCE A DAY (ONE TO BE TAKEN AT NIGHT )
     Route: 065
     Dates: start: 20250609
  24. ESTRADIOL HEMIHYDRATE [Concomitant]
     Active Substance: ESTRADIOL HEMIHYDRATE
     Indication: Ill-defined disorder
     Dosage: UNK (INSERT VAGINALLY)
     Route: 067
     Dates: start: 20251006

REACTIONS (2)
  - Cognitive disorder [Recovered/Resolved]
  - Tremor [Recovered/Resolved]
